FAERS Safety Report 13989971 (Version 3)
Quarter: 2019Q1

REPORT INFORMATION
  Report Type: Spontaneous
  Country: US (occurrence: US)
  Receive Date: 20170920
  Receipt Date: 20190129
  Transmission Date: 20190417
  Serious: No
  Sender: FDA-Public Use
  Company Number: US-GLAXOSMITHKLINE-US2017143264

PATIENT
  Sex: Female

DRUGS (2)
  1. ALLI [Suspect]
     Active Substance: ORLISTAT
     Indication: WEIGHT LOSS DIET
     Dosage: UNK
     Dates: start: 2011
  2. ALLI [Suspect]
     Active Substance: ORLISTAT
     Dosage: UNK
     Dates: start: 20170731

REACTIONS (4)
  - Treatment noncompliance [Unknown]
  - Gastrointestinal disorder [Unknown]
  - Product complaint [Unknown]
  - Drug ineffective [Unknown]
